FAERS Safety Report 10024758 (Version 4)
Quarter: 2015Q2

REPORT INFORMATION
  Report Type: Spontaneous
  Country: US (occurrence: US)
  Receive Date: 20140320
  Receipt Date: 20150605
  Transmission Date: 20150821
  Serious: Yes (Hospitalization, Other)
  Sender: FDA-Public Use
  Company Number: US-SANOFI-AVENTIS-2012SA003266

PATIENT
  Age: 57 Year
  Sex: Male

DRUGS (13)
  1. PLAVIX [Suspect]
     Active Substance: CLOPIDOGREL BISULFATE
     Indication: CARDIAC OPERATION
     Route: 048
     Dates: start: 20080613, end: 20100604
  2. SIMVASTATIN. [Concomitant]
     Active Substance: SIMVASTATIN
     Dosage: 80MG
     Route: 048
  3. BENAZEPRIL/HYDROCHLOROTHIAZIDE [Concomitant]
     Route: 048
  4. FENTANYL. [Concomitant]
     Active Substance: FENTANYL
     Dosage: 50MCG
     Dates: start: 20100402
  5. NTG [Concomitant]
     Active Substance: NITROGLYCERIN
     Dates: start: 20100402
  6. NIASPAN [Concomitant]
     Active Substance: NIACIN
     Dosage: 500MG
     Route: 048
  7. VERSED [Concomitant]
     Active Substance: MIDAZOLAM HYDROCHLORIDE
     Dosage: 1MG
     Dates: start: 20100402
  8. XYLOCAINE [Concomitant]
     Active Substance: LIDOCAINE HYDROCHLORIDE
     Dosage: 2%?RIGHT GROIN
     Dates: start: 20100402
  9. PLAVIX [Suspect]
     Active Substance: CLOPIDOGREL BISULFATE
     Indication: INTERNAL HAEMORRHAGE
     Route: 048
     Dates: start: 20080613, end: 20100604
  10. SOLU-MEDROL [Concomitant]
     Active Substance: METHYLPREDNISOLONE SODIUM SUCCINATE
  11. XYLOCAINE [Concomitant]
     Active Substance: LIDOCAINE HYDROCHLORIDE
     Dosage: 2%?RIGHT GROIN
     Dates: start: 20100402
  12. ANDROGEL [Concomitant]
     Active Substance: TESTOSTERONE
     Dosage: 5 GM?90 PACKET
  13. NIFEDIPINE. [Concomitant]
     Active Substance: NIFEDIPINE
     Route: 048

REACTIONS (2)
  - Multiple injuries [Unknown]
  - Gastrointestinal haemorrhage [Recovered/Resolved]

NARRATIVE: CASE EVENT DATE: 20100604
